FAERS Safety Report 21188165 (Version 1)
Quarter: 2022Q3

REPORT INFORMATION
  Report Type: Spontaneous
  Country: JP (occurrence: JP)
  Receive Date: 20220809
  Receipt Date: 20220809
  Transmission Date: 20221027
  Serious: Yes (Death, Other)
  Sender: FDA-Public Use
  Company Number: JP-JNJFOC-20220814786

PATIENT
  Age: 55 Year
  Sex: Female

DRUGS (18)
  1. UPTRAVI [Suspect]
     Active Substance: SELEXIPAG
     Indication: Pulmonary arterial hypertension
     Route: 048
     Dates: start: 20200301, end: 202003
  2. UPTRAVI [Suspect]
     Active Substance: SELEXIPAG
     Route: 048
     Dates: start: 202003, end: 202005
  3. UPTRAVI [Suspect]
     Active Substance: SELEXIPAG
     Route: 048
     Dates: start: 202005, end: 202008
  4. UPTRAVI [Suspect]
     Active Substance: SELEXIPAG
     Route: 048
     Dates: start: 202008, end: 202009
  5. UPTRAVI [Suspect]
     Active Substance: SELEXIPAG
     Route: 048
     Dates: start: 202009, end: 20201101
  6. ADEMPAS [Concomitant]
     Active Substance: RIOCIGUAT
     Indication: Pulmonary arterial hypertension
     Dates: start: 201805, end: 201805
  7. ADEMPAS [Concomitant]
     Active Substance: RIOCIGUAT
     Dates: start: 201805, end: 201807
  8. ADEMPAS [Concomitant]
     Active Substance: RIOCIGUAT
     Dates: start: 201807, end: 201808
  9. ADEMPAS [Concomitant]
     Active Substance: RIOCIGUAT
     Dates: start: 201808, end: 201809
  10. ADEMPAS [Concomitant]
     Active Substance: RIOCIGUAT
     Dates: start: 201809, end: 20181101
  11. OPSUMIT [Concomitant]
     Active Substance: MACITENTAN
     Indication: Pulmonary arterial hypertension
     Dates: start: 20180503, end: 201806
  12. OPSUMIT [Concomitant]
     Active Substance: MACITENTAN
     Dates: start: 201806, end: 20201101
  13. FUROSEMIDE [Concomitant]
     Active Substance: FUROSEMIDE
     Dates: end: 201805
  14. FUROSEMIDE [Concomitant]
     Active Substance: FUROSEMIDE
     Dates: start: 201805, end: 201909
  15. FUROSEMIDE [Concomitant]
     Active Substance: FUROSEMIDE
     Dates: start: 201909, end: 201910
  16. FUROSEMIDE [Concomitant]
     Active Substance: FUROSEMIDE
     Dates: start: 201910, end: 20191101
  17. SPIRONOLACTONE [Concomitant]
     Active Substance: SPIRONOLACTONE
     Dates: start: 201811, end: 201903
  18. SPIRONOLACTONE [Concomitant]
     Active Substance: SPIRONOLACTONE
     Dates: start: 201903, end: 20201101

REACTIONS (2)
  - Sudden death [Fatal]
  - Syncope [Unknown]

NARRATIVE: CASE EVENT DATE: 20201228
